FAERS Safety Report 8014840-3 (Version None)
Quarter: 2011Q4

REPORT INFORMATION
  Report Type: 
  Country: None (occurrence: None)
  Receive Date: 20111229
  Receipt Date: 20111222
  Transmission Date: 20120403
  Serious: Yes (Hospitalization)
  Sender: FDA-Public Use
  Company Number: DE-ROCHE-1021057

PATIENT
  Sex: Female
  Weight: 81 kg

DRUGS (12)
  1. ASPIRIN [Concomitant]
     Dates: start: 20110101
  2. ESCITALOPRAM [Concomitant]
  3. MABTHERA [Suspect]
     Indication: NON-HODGKIN'S LYMPHOMA
     Dosage: LAST DOSE PRIOR TO SAE: 14/NOV/2011
     Route: 042
     Dates: start: 20101102
  4. MACROGOL [Concomitant]
     Dates: start: 20110101
  5. ACC LONG [Concomitant]
  6. SPIRO COMP [Concomitant]
     Dates: start: 20110101
  7. BENDAMUSTINE [Suspect]
     Indication: NON-HODGKIN'S LYMPHOMA
     Dosage: LAST DOSE PRIOR TO SAE: 7/JUL/2010
     Route: 042
     Dates: start: 20100621
  8. PANTOPRAZOLE [Concomitant]
     Dates: start: 20110101
  9. VERAPAMIL [Concomitant]
     Dates: start: 20110101
  10. CLARITHROMYCIN [Concomitant]
  11. COTRIM DS [Concomitant]
     Dates: start: 20110711, end: 20110731
  12. OPIPRAMOL [Concomitant]

REACTIONS (1)
  - PSEUDOMEMBRANOUS COLITIS [None]
